FAERS Safety Report 7962380-X (Version None)
Quarter: 2011Q4

REPORT INFORMATION
  Report Type: 
  Country: None (occurrence: None)
  Receive Date: 20111207
  Receipt Date: 20111129
  Transmission Date: 20120403
  Serious: Yes (Hospitalization, Other)
  Sender: FDA-Public Use
  Company Number: CHPA2011US017063

PATIENT
  Age: 1 Day
  Sex: Male

DRUGS (1)
  1. KERI ORIGINAL SOFTLY SCENTED [Suspect]
     Indication: ECZEMA
     Dosage: UNK, APPLIED DAILY
     Route: 061

REACTIONS (3)
  - ASTHMA [None]
  - THERAPEUTIC RESPONSE UNEXPECTED [None]
  - OFF LABEL USE [None]
